FAERS Safety Report 21343692 (Version 1)
Quarter: 2022Q3

REPORT INFORMATION
  Report Type: Spontaneous
  Country: FR (occurrence: FR)
  Receive Date: 20220916
  Receipt Date: 20220916
  Transmission Date: 20221027
  Serious: Yes (Death)
  Sender: FDA-Public Use
  Company Number: FR-JNJFOC-20220925840

PATIENT
  Age: 42 Year
  Sex: Female

DRUGS (1)
  1. SPRAVATO [Suspect]
     Active Substance: ESKETAMINE
     Indication: Product used for unknown indication
     Dosage: LAST DOSE-/AUG/2022 (WEEK 32)
     Dates: end: 202208

REACTIONS (1)
  - Pulmonary embolism [Fatal]
